FAERS Safety Report 13782308 (Version 1)
Quarter: 2017Q3

REPORT INFORMATION
  Report Type: Spontaneous
  Country: US (occurrence: US)
  Receive Date: 20170724
  Receipt Date: 20170724
  Transmission Date: 20171127
  Serious: Yes (Other)
  Sender: FDA-Public Use
  Company Number: None

PATIENT
  Age: 7 Year
  Sex: Female

DRUGS (1)
  1. QUILLIVANT XR [Suspect]
     Active Substance: METHYLPHENIDATE HYDROCHLORIDE
     Indication: ATTENTION DEFICIT/HYPERACTIVITY DISORDER
     Dosage: ?          OTHER DOSE:ML;?
     Route: 048
     Dates: start: 20170723, end: 20170723

REACTIONS (3)
  - Hallucination, auditory [None]
  - Anxiety [None]
  - Cerebral disorder [None]

NARRATIVE: CASE EVENT DATE: 20170723
